FAERS Safety Report 9552433 (Version 2)
Quarter: 2013Q4

REPORT INFORMATION
  Report Type: Spontaneous
  Country: US (occurrence: US)
  Receive Date: 20130925
  Receipt Date: 20131211
  Transmission Date: 20140711
  Serious: No
  Sender: FDA-Public Use
  Company Number: US-PFIZER INC-2013272621

PATIENT
  Age: 56 Year
  Sex: Female
  Weight: 70.3 kg

DRUGS (3)
  1. LEVOXYL [Suspect]
     Indication: THYROID DISORDER
     Dosage: 100 UG, 1X/DAY
     Route: 048
     Dates: start: 2008
  2. DIVIGEL [Concomitant]
     Indication: MENOPAUSE
     Dosage: UNK
  3. CHLORPHENIRAMINE MALEATE [Concomitant]
     Indication: HYPERSENSITIVITY
     Dosage: 4 MG, AS NEEDED

REACTIONS (2)
  - Activities of daily living impaired [Unknown]
  - Feeling abnormal [Unknown]
